FAERS Safety Report 14432173 (Version 6)
Quarter: 2018Q4

REPORT INFORMATION
  Report Type: Spontaneous
  Country: US (occurrence: US)
  Receive Date: 20180124
  Receipt Date: 20181227
  Transmission Date: 20190204
  Serious: No
  Sender: FDA-Public Use
  Company Number: US-BRISTOL-MYERS SQUIBB COMPANY-BMS-2018-004464

PATIENT
  Sex: Female
  Weight: 67.6 kg

DRUGS (2)
  1. ORENCIA [Suspect]
     Active Substance: ABATACEPT
     Indication: RHEUMATOID ARTHRITIS
     Dosage: 125 MG, QWK
     Route: 058
     Dates: start: 201708
  2. METHOTREXATE. [Suspect]
     Active Substance: METHOTREXATE
     Indication: RHEUMATOID ARTHRITIS
     Dosage: 0.8 ML, QWK
     Route: 058
     Dates: start: 201603

REACTIONS (6)
  - Hypotension [Unknown]
  - Skin burning sensation [Unknown]
  - Dizziness [Unknown]
  - Bronchitis [Unknown]
  - Alopecia [Unknown]
  - Pain of skin [Unknown]
